FAERS Safety Report 22106955 (Version 1)
Quarter: 2023Q1

REPORT INFORMATION
  Report Type: Spontaneous
  Country: US (occurrence: US)
  Receive Date: 20230317
  Receipt Date: 20230317
  Transmission Date: 20230418
  Serious: No
  Sender: FDA-Public Use
  Company Number: US-SANOFI-01534235

PATIENT
  Age: 79 Year
  Sex: Male

DRUGS (2)
  1. LANTUS SOLOSTAR [Suspect]
     Active Substance: INSULIN GLARGINE
     Indication: Type 2 diabetes mellitus
     Dosage: 55 IU, QD
  2. LANTUS SOLOSTAR [Suspect]
     Active Substance: INSULIN GLARGINE
     Dosage: 20-UNITS IN THE MORNING AND 28-UNITS HS

REACTIONS (1)
  - Inappropriate schedule of product administration [Unknown]
